FAERS Safety Report 13658451 (Version 3)
Quarter: 2017Q3

REPORT INFORMATION
  Report Type: Report from Study
  Country: ES (occurrence: ES)
  Receive Date: 20170616
  Receipt Date: 20170802
  Transmission Date: 20171127
  Serious: Yes (Life-Threatening)
  Sender: FDA-Public Use
  Company Number: ES-ROCHE-1950198

PATIENT
  Age: 70 Year
  Sex: Female
  Weight: 74.5 kg

DRUGS (5)
  1. DOXORUBICIN [Suspect]
     Active Substance: DOXORUBICIN
     Indication: DIFFUSE LARGE B-CELL LYMPHOMA
     Dosage: MOST RECENT DOSE (88 MG) OF DOXORUBICIN PRIOR TO AE ONSET: 01/MAR/2012
     Route: 042
     Dates: start: 20111115
  2. CYCLOPHOSPHAMIDE. [Suspect]
     Active Substance: CYCLOPHOSPHAMIDE
     Indication: DIFFUSE LARGE B-CELL LYMPHOMA
     Dosage: MOST RECENT DOSE (1320 MG) OF CYCLOPHOSPHAMIDE PRIOR TO AE ONSET 01/MAR/2012
     Route: 042
     Dates: start: 20111115
  3. METHYLPREDNISOLONE. [Suspect]
     Active Substance: METHYLPREDNISOLONE
     Indication: DIFFUSE LARGE B-CELL LYMPHOMA
     Dosage: MOST RECENT DOSE (80 MG) OF METHYLPREDNISOLONE PRIOR TO AE ONSET: 01/MAR/2012
     Route: 042
     Dates: start: 20111115
  4. RITUXIMAB. [Suspect]
     Active Substance: RITUXIMAB
     Indication: DIFFUSE LARGE B-CELL LYMPHOMA
     Dosage: MOST RECENT DOSE (375 MG/ML) OF RITUXIMAB PRIOR TO AE ONSET: 12/APR/2012
     Route: 042
     Dates: start: 20111115
  5. VINCRISTINE [Suspect]
     Active Substance: VINCRISTINE
     Indication: DIFFUSE LARGE B-CELL LYMPHOMA
     Dosage: DOSE AS PER PROTOCOL - 1.4 TO 2.0 MG/M2. MOST RECENT DOSE (1.99 MG) OF VINCRISTINE PRIOR TO AE ONSET
     Route: 040
     Dates: start: 20111115

REACTIONS (1)
  - Lung adenocarcinoma [Not Recovered/Not Resolved]

NARRATIVE: CASE EVENT DATE: 20170509
